FAERS Safety Report 9678225 (Version 2)
Quarter: 2014Q1

REPORT INFORMATION
  Report Type: Spontaneous
  Country: US (occurrence: None)
  Receive Date: 20131106
  Receipt Date: 20140122
  Transmission Date: 20141002
  Serious: Yes (Hospitalization)
  Sender: FDA-Public Use
  Company Number: 2013SGN00662

PATIENT
  Age: 34 Year
  Sex: Male
  Weight: 61.2 kg

DRUGS (2)
  1. BRENTUXIMAB VEDOTIN [Suspect]
     Indication: HODGKIN^S DISEASE
     Dosage: 1.58 MG/KG, Q21D, INTRAVENOUS
     Route: 042
     Dates: start: 20130930, end: 20130930
  2. PERCOCET ( OXYCODONE HYDROCHLORIDE, PARACETAMOL) [Concomitant]

REACTIONS (1)
  - Chest pain [None]
